FAERS Safety Report 8293003-0 (Version None)
Quarter: 2012Q2

REPORT INFORMATION
  Report Type: 
  Country: None (occurrence: None)
  Receive Date: 20120417
  Receipt Date: 20120208
  Transmission Date: 20120825
  Serious: No
  Sender: FDA-Public Use
  Company Number: US-ASTRAZENECA-2012SE08944

PATIENT
  Age: 50 Year
  Sex: Male
  Weight: 102.1 kg

DRUGS (5)
  1. CALCIUM CITRATE [Concomitant]
  2. VITAMIN D [Concomitant]
  3. NEXIUM [Suspect]
     Indication: GASTROOESOPHAGEAL REFLUX DISEASE
     Route: 048
     Dates: start: 20100101
  4. NEXIUM [Suspect]
     Route: 048
  5. NEXIUM [Suspect]
     Route: 048

REACTIONS (3)
  - OFF LABEL USE [None]
  - BONE DISORDER [None]
  - WEIGHT DECREASED [None]
